FAERS Safety Report 24231828 (Version 1)
Quarter: 2024Q3

REPORT INFORMATION
  Report Type: Spontaneous
  Country: US (occurrence: US)
  Receive Date: 20240821
  Receipt Date: 20240821
  Transmission Date: 20241016
  Serious: No
  Sender: JOHNSON AND JOHNSON
  Company Number: US-JNJFOC-20240850522

PATIENT
  Sex: Male

DRUGS (2)
  1. MENS ROGAINE EXTRA STRENGTH [Suspect]
     Active Substance: MINOXIDIL
     Indication: Alopecia
     Route: 061
     Dates: start: 20240515, end: 2024
  2. MG217 PSORIASIS 3% SAL ACID FORMULA [Concomitant]
     Route: 065

REACTIONS (6)
  - Application site scab [Unknown]
  - Hair texture abnormal [Unknown]
  - Application site dryness [Unknown]
  - Application site exfoliation [Not Recovered/Not Resolved]
  - Alopecia [Not Recovered/Not Resolved]
  - Contraindicated product administered [Unknown]

NARRATIVE: CASE EVENT DATE: 20240101
